FAERS Safety Report 14967741 (Version 1)
Quarter: 2018Q2

REPORT INFORMATION
  Report Type: Spontaneous
  Country: GR (occurrence: GR)
  Receive Date: 20180604
  Receipt Date: 20180604
  Transmission Date: 20180711
  Serious: Yes (Hospitalization)
  Sender: FDA-Public Use
  Company Number: PHHY2018GR013132

PATIENT

DRUGS (5)
  1. RITUXIMAB. [Suspect]
     Active Substance: RITUXIMAB
     Indication: NODAL MARGINAL ZONE B-CELL LYMPHOMA
     Dosage: UNK
     Route: 065
  2. DOXORUBICIN [Suspect]
     Active Substance: DOXORUBICIN
     Indication: NODAL MARGINAL ZONE B-CELL LYMPHOMA
     Dosage: UNK
     Route: 065
  3. PREDNISONE. [Suspect]
     Active Substance: PREDNISONE
     Indication: NODAL MARGINAL ZONE B-CELL LYMPHOMA
     Dosage: UNK
     Route: 065
  4. VINCRISTINE [Suspect]
     Active Substance: VINCRISTINE
     Indication: NODAL MARGINAL ZONE B-CELL LYMPHOMA
     Dosage: UNK
     Route: 065
  5. CYCLOPHOSPHAMIDE. [Suspect]
     Active Substance: CYCLOPHOSPHAMIDE
     Indication: NODAL MARGINAL ZONE B-CELL LYMPHOMA
     Dosage: UNK
     Route: 065

REACTIONS (11)
  - Mediastinal mass [Unknown]
  - Blood lactate dehydrogenase increased [Unknown]
  - Therapeutic response decreased [Unknown]
  - Cough [Unknown]
  - Pleural effusion [Unknown]
  - Nodal marginal zone B-cell lymphoma [Unknown]
  - Pyrexia [Unknown]
  - Bone marrow infiltration [Unknown]
  - Bone marrow necrosis [Unknown]
  - Dyspnoea [Unknown]
  - Lymphadenopathy [Unknown]
